FAERS Safety Report 5118473-8 (Version None)
Quarter: 2006Q4

REPORT INFORMATION
  Report Type: 
  Country: None (occurrence: None)
  Receive Date: 20061002
  Receipt Date: 20060918
  Transmission Date: 20070319
  Serious: Yes (Other)
  Sender: FDA-Public Use
  Company Number: PHBS2006NZ14513

PATIENT
  Age: 21 Year
  Sex: Male

DRUGS (6)
  1. RITALIN [Suspect]
     Route: 065
  2. METAMFETAMINE [Suspect]
  3. LSD [Suspect]
  4. HERBAL PREPARATION [Suspect]
  5. MAGIC MUSHROOM [Suspect]
  6. CANNABIS [Suspect]

REACTIONS (1)
  - INTENTIONAL DRUG MISUSE [None]
